FAERS Safety Report 5591101-3 (Version None)
Quarter: 2008Q1

REPORT INFORMATION
  Report Type: 
  Country: None (occurrence: None)
  Receive Date: 20080115
  Receipt Date: 20080110
  Transmission Date: 20080703
  Serious: Yes (Life-Threatening, Hospitalization, Disabling, Other)
  Sender: FDA-Public Use
  Company Number: PHFR2007GB03541

PATIENT
  Age: 35 Year
  Sex: Male

DRUGS (4)
  1. CLOZARIL [Suspect]
     Indication: SCHIZOPHRENIA
     Dosage: 175MG AM / 300MG PM
     Route: 048
     Dates: start: 20010912, end: 20071204
  2. VALPROIC ACID [Concomitant]
     Dosage: 1250 MG, QD
     Route: 065
  3. CITALOPRAM [Concomitant]
     Dosage: 40 MG, QD
     Route: 048
  4. BECLOMETHASONE DIPROPIONATE [Concomitant]
     Indication: ASTHMA
     Dosage: 2 DF, BID

REACTIONS (15)
  - ALANINE AMINOTRANSFERASE INCREASED [None]
  - BLOOD CREATININE INCREASED [None]
  - BLOOD UREA INCREASED [None]
  - CARDIAC FAILURE [None]
  - CARDIOMEGALY [None]
  - CARDIOMYOPATHY [None]
  - DYSPNOEA [None]
  - ECHOCARDIOGRAM ABNORMAL [None]
  - EXERCISE TOLERANCE DECREASED [None]
  - HAEMOPTYSIS [None]
  - HYPOTENSION [None]
  - LEFT VENTRICULAR FAILURE [None]
  - LIVER FUNCTION TEST ABNORMAL [None]
  - LOWER RESPIRATORY TRACT INFECTION [None]
  - RENAL IMPAIRMENT [None]
